FAERS Safety Report 7540692-1 (Version None)
Quarter: 2011Q2

REPORT INFORMATION
  Report Type: 
  Country: None (occurrence: None)
  Receive Date: 20110610
  Receipt Date: 20110608
  Transmission Date: 20111010
  Serious: Yes (Other)
  Sender: FDA-Public Use
  Company Number: JP-PFIZER INC-2011087420

PATIENT
  Age: 28 Year
  Sex: Female
  Weight: 44 kg

DRUGS (19)
  1. LYRICA [Suspect]
     Dosage: 75 MG, 3X/DAY
     Route: 048
     Dates: start: 20110214, end: 20110303
  2. FENTANYL [Concomitant]
     Indication: ARTHRALGIA
     Dosage: 6.3 MG EVERY 3 DAYS
     Route: 023
     Dates: start: 20110207
  3. NORGESTREL AND ETHINYL ESTRADIOL [Concomitant]
     Indication: POLYMENORRHOEA
     Dosage: 1 DF, 1X/DAY
     Route: 048
     Dates: start: 20110214
  4. MEILAX [Concomitant]
     Indication: ANXIETY DISORDER
     Dosage: 1 MG, 1X/DAY
     Route: 048
     Dates: start: 20110218
  5. BISOPROLOL FUMARATE [Concomitant]
     Indication: CARDIAC FAILURE
     Dosage: 2.5 MG, 1X/DAY
     Route: 048
     Dates: start: 20110207
  6. ALDACTONE [Concomitant]
     Indication: OEDEMA
     Dosage: 25 MG, 1X/DAY
     Route: 048
     Dates: start: 20110207
  7. ZADITEN [Concomitant]
     Indication: PRURITUS
     Dosage: 1 MG, 2X/DAY
     Route: 048
     Dates: start: 20110214
  8. LASIX [Concomitant]
     Indication: OEDEMA
     Dosage: 40 MG, 1X/DAY
     Route: 048
     Dates: start: 20110207
  9. WARFARIN [Concomitant]
     Indication: MITRAL VALVE REPLACEMENT
     Dosage: 5.5 MG, 1X/DAY
     Route: 048
     Dates: start: 20110207
  10. DEQUALINIUM CHLORIDE [Concomitant]
     Indication: OROPHARYNGEAL PAIN
     Dosage: 0.25 MG, 4X/DAY
     Route: 048
     Dates: start: 20110207
  11. LYRICA [Suspect]
     Indication: ABDOMINAL PAIN LOWER
     Dosage: 75 MG, 2X/DAY
     Route: 048
     Dates: start: 20110207, end: 20110214
  12. OMEPRAZOLE [Concomitant]
     Indication: PROPHYLAXIS
     Dosage: 20 MG, 1X/DAY
     Route: 048
     Dates: start: 20110207
  13. ALDACTONE [Concomitant]
     Indication: CARDIAC FAILURE
  14. HYDANTOL F [Concomitant]
     Indication: MUSCLE SPASMS
     Dosage: 3 TABLES 3 TIMES A DAY
     Route: 048
     Dates: start: 20110207
  15. MAGMITT [Concomitant]
     Indication: CONSTIPATION
     Dosage: 500 MG, 3X/DAY
     Route: 048
     Dates: start: 20110207
  16. MUCOSTA [Concomitant]
     Indication: PROPHYLAXIS
     Dosage: 100 MG, 2X/WEEK
     Route: 048
     Dates: start: 20110207
  17. AZELASTINE HCL [Concomitant]
     Indication: PRURITUS
     Dosage: 1 MG, 2X/DAY
     Route: 048
     Dates: start: 20110214
  18. ALPRAZOLAM [Concomitant]
     Indication: ANXIETY DISORDER
     Dosage: 0.4 MG, AS NEEDED
     Route: 048
     Dates: start: 20110218
  19. LASIX [Concomitant]
     Indication: CARDIAC FAILURE

REACTIONS (1)
  - RHABDOMYOLYSIS [None]
